FAERS Safety Report 18105623 (Version 1)
Quarter: 2020Q3

REPORT INFORMATION
  Report Type: Spontaneous
  Country: CN (occurrence: CN)
  Receive Date: 20200803
  Receipt Date: 20200803
  Transmission Date: 20201103
  Serious: Yes (Other)
  Sender: FDA-Public Use
  Company Number: CN-BAXTER-2020BAX015460

PATIENT
  Age: 4 Year
  Sex: Male
  Weight: 15.5 kg

DRUGS (39)
  1. VINCRISTINE SULFATE. [Suspect]
     Active Substance: VINCRISTINE SULFATE
     Indication: ACUTE LYMPHOCYTIC LEUKAEMIA
     Dosage: FIRST TO THIRD CYCLE OF CHEMOTHERAPY, VINCRISTINE + 0.9% SODIUM CHLORIDE
     Route: 042
  2. METHOTREXATE. [Suspect]
     Active Substance: METHOTREXATE
     Indication: ACUTE LYMPHOCYTIC LEUKAEMIA
     Dosage: FIRST TO THIRD CYCLES OF CHEMOTHERAPY, 0.9% SODIUM CHLORIDE + DEXAMETHASONE + METHOTREXATE
     Route: 037
  3. METHOTREXATE. [Suspect]
     Active Substance: METHOTREXATE
     Dosage: FOURTH CYCLE OF CHEMOTHERAPY, 0.9% SODIUM CHLORIDE 3ML + DEXAMETHASONE + METHOTREXATE
     Route: 037
     Dates: start: 20200617, end: 20200617
  4. DEXAMETHASONE SODIUM PHOSPHATE. [Suspect]
     Active Substance: DEXAMETHASONE SODIUM PHOSPHATE
     Dosage: DOSE RE?INTRODUCED, 0.9% SODIUM CHLORIDE+ DEXAMETHASONE+ METHOTREXATE
     Route: 037
  5. AIYANG (PEGASPARGASE) [Suspect]
     Active Substance: PEGASPARGASE
     Indication: ACUTE LYMPHOCYTIC LEUKAEMIA
     Dosage: FIRST TO THIRD CYCLE OF CHEMOTHERAPY
     Route: 030
  6. SAIDESA (CYTARABINE) [Suspect]
     Active Substance: CYTARABINE
     Dosage: FOURTH CYCLE OF CHEMOTHERAPY, 0.9% SODIUM CHLORIDE 3ML + DEXAMETHASONE + CYTARABINE
     Route: 037
     Dates: start: 20200617, end: 20200617
  7. 0.9% SODIUM CHLORIDE INJECTION [Suspect]
     Active Substance: SODIUM CHLORIDE
     Dosage: FIRST TO THIRD CYCLES OF CHEMOTHERAPY, 0.9% SODIUM CHLORIDE+ DEXAMETHASONE+ CYTARABINE
     Route: 037
  8. 0.9% SODIUM CHLORIDE INJECTION [Suspect]
     Active Substance: SODIUM CHLORIDE
     Dosage: DOSE RE?INTRODUCED, 0.9% SODIUM CHLORIDE+ DEXAMETHASONE+ CYTARABINE
     Route: 037
  9. DEXAMETHASONE SODIUM PHOSPHATE. [Suspect]
     Active Substance: DEXAMETHASONE SODIUM PHOSPHATE
     Dosage: FOURTH CYCLES OF CHEMOTHERAPY, 0.9% SODIUM CHLORIDE 3 ML+ DEXAMETHASONE+ METHOTREXATE
     Route: 037
     Dates: start: 20200617, end: 20200617
  10. AIYANG (PEGASPARGASE) [Suspect]
     Active Substance: PEGASPARGASE
     Dosage: DOSE RE?INTRODUCED
     Route: 030
  11. SAIDESA (CYTARABINE) [Suspect]
     Active Substance: CYTARABINE
     Indication: ACUTE LYMPHOCYTIC LEUKAEMIA
     Dosage: FIRST TO THIRD CYCLES OF CHEMOTHERAPY, 0.9% SODIUM CHLORIDE+ DEXAMETHASONE+ CYTARABINE
     Route: 037
  12. 0.9% SODIUM CHLORIDE INJECTION [Suspect]
     Active Substance: SODIUM CHLORIDE
     Dosage: DOSE RE?INTRODUCED, 0.9% SODIUM CHLORIDE+ DEXAMETHASONE+ METHOTREXATE
     Route: 037
  13. 0.9% SODIUM CHLORIDE INJECTION [Suspect]
     Active Substance: SODIUM CHLORIDE
     Dosage: DOSE RE?INTRODUCED, CYCLOPHOSPHAMIDE + 0.9% SODIUM CHLORIDE
     Route: 041
  14. DEXAMETHASONE SODIUM PHOSPHATE. [Suspect]
     Active Substance: DEXAMETHASONE SODIUM PHOSPHATE
     Dosage: FIRST TO THIRD CYCLES OF CHEMOTHERAPY, 0.9% SODIUM CHLORIDE+ DEXAMETHASONE+ CYTARABINE
     Route: 037
  15. VINCRISTINE SULFATE. [Suspect]
     Active Substance: VINCRISTINE SULFATE
     Dosage: DOSE RE?INTRODUCED, VINCRISTINE + 0.9% SODIUM CHLORIDE
     Route: 042
  16. SAIDESA (CYTARABINE) [Suspect]
     Active Substance: CYTARABINE
     Dosage: DOSE RE?INTRODUCED, 5% GLUCOSE INJECTION + CYTARABINE
     Route: 041
  17. ENDOXAN [Suspect]
     Active Substance: CYCLOPHOSPHAMIDE
     Indication: ACUTE LYMPHOCYTIC LEUKAEMIA
     Dosage: FIRST TO THIRD CYCLE OF CHEMOTHERAPY, CYCLOPHOSPHAMIDE + 0.9% SODIUM CHLORIDE
     Route: 041
  18. ENDOXAN [Suspect]
     Active Substance: CYCLOPHOSPHAMIDE
     Dosage: DOSE RE?INTRODUCED, CYCLOPHOSPHAMIDE + 0.9% SODIUM CHLORIDE
     Route: 041
  19. 5% GLUCOSE  INJECTION [Suspect]
     Active Substance: DEXTROSE
     Dosage: FOURTH CYCLES OF CHEMOTHERAPY, 5% GLUCOSE INJECTION + CYTARABINE 0.032G
     Route: 041
     Dates: start: 20200617, end: 20200624
  20. 0.9% SODIUM CHLORIDE INJECTION [Suspect]
     Active Substance: SODIUM CHLORIDE
     Dosage: FOURTH CYCLE OF CHEMOTHERAPY, CYCLOPHOSPHAMIDE 0.64 G + 0.9% SODIUM CHLORIDE
     Route: 041
     Dates: start: 20200617, end: 20200617
  21. DEXAMETHASONE SODIUM PHOSPHATE. [Suspect]
     Active Substance: DEXAMETHASONE SODIUM PHOSPHATE
     Indication: ACUTE LYMPHOCYTIC LEUKAEMIA
     Dosage: FIRST TO THIRD CYCLES OF CHEMOTHERAPY, 0.9% SODIUM CHLORIDE+ DEXAMETHASONE+ METHOTREXATE
     Route: 037
  22. METHOTREXATE. [Suspect]
     Active Substance: METHOTREXATE
     Dosage: DOSE RE?INTRODUCED, 0.9% SODIUM CHLORIDE + DEXAMETHASONE + METHOTREXATE
     Route: 037
  23. SAIDESA (CYTARABINE) [Suspect]
     Active Substance: CYTARABINE
     Dosage: FIRST TO THIRD CYCLES OF CHEMOTHERAPY, 5% GLUCOSE INJECTION + CYTARABINE
     Route: 041
  24. SAIDESA (CYTARABINE) [Suspect]
     Active Substance: CYTARABINE
     Dosage: DOSE RE?INTRODUCED, 0.9% SODIUM CHLORIDE+ DEXAMETHASONE+ CYTARABINE
     Route: 037
  25. 5% GLUCOSE  INJECTION [Suspect]
     Active Substance: DEXTROSE
     Indication: MEDICATION DILUTION
     Dosage: FIRST TO THIRD CYCLES OF CHEMOTHERAPY, 5% GLUCOSE INJECTION + CYTARABINE
     Route: 041
  26. AIYANG (PEGASPARGASE) [Suspect]
     Active Substance: PEGASPARGASE
     Dosage: FOURTH CYCLE OF CHEMOTHERAPY
     Route: 030
     Dates: start: 20200617, end: 20200617
  27. 5% GLUCOSE  INJECTION [Suspect]
     Active Substance: DEXTROSE
     Dosage: DOSE RE?INTRODUCED, 5% GLUCOSE INJECTION + CYTARABINE
     Route: 041
  28. 0.9% SODIUM CHLORIDE INJECTION [Suspect]
     Active Substance: SODIUM CHLORIDE
     Indication: MEDICATION DILUTION
     Dosage: FIRST TO THIRD CYCLES OF CHEMOTHERAPY, 0.9% SODIUM CHLORIDE+ DEXAMETHASONE+ METHOTREXATE
     Route: 037
  29. 0.9% SODIUM CHLORIDE INJECTION [Suspect]
     Active Substance: SODIUM CHLORIDE
     Dosage: FIRST TO THIRD CYCLE OF CHEMOTHERAPY, VINCRISTINE + 0.9% SODIUM CHLORIDE
     Route: 042
  30. VINCRISTINE SULFATE. [Suspect]
     Active Substance: VINCRISTINE SULFATE
     Dosage: FOURTH CYCLE OF CHEMOTHERAPY, VINCRISTINE + 0.9% SODIUM CHLORIDE 10ML
     Route: 042
     Dates: start: 20200624, end: 20200624
  31. ENDOXAN [Suspect]
     Active Substance: CYCLOPHOSPHAMIDE
     Dosage: FOURTH CYCLE OF CHEMOTHERAPY, CYCLOPHOSPHAMIDE + 0.9% SODIUM CHLORIDE 250ML
     Route: 041
     Dates: start: 20200617, end: 20200617
  32. 0.9% SODIUM CHLORIDE INJECTION [Suspect]
     Active Substance: SODIUM CHLORIDE
     Dosage: FIRST TO THIRD CYCLE OF CHEMOTHERAPY, CYCLOPHOSPHAMIDE + 0.9% SODIUM CHLORIDE
     Route: 041
  33. 0.9% SODIUM CHLORIDE INJECTION [Suspect]
     Active Substance: SODIUM CHLORIDE
     Dosage: FOURTH CYCLE OF CHEMOTHERAPY, 0.9% SODIUM CHLORIDE + DEXAMETHASONE + METHOTREXATE 12.5 MG
     Route: 037
     Dates: start: 20200617, end: 20200617
  34. 0.9% SODIUM CHLORIDE INJECTION [Suspect]
     Active Substance: SODIUM CHLORIDE
     Dosage: FOURTH CYCLE OF CHEMOTHERAPY, 0.9% SODIUM CHLORIDE+ DEXAMETHASONE 2.5 MG+ CYTARABINE
     Route: 037
     Dates: start: 20200617, end: 20200617
  35. 0.9% SODIUM CHLORIDE INJECTION [Suspect]
     Active Substance: SODIUM CHLORIDE
     Dosage: FOURTH CYCLE OF CHEMOTHERAPY, VINCRISTINE 1 MG+ 0.9% SODIUM CHLORIDE
     Route: 042
     Dates: start: 20200624, end: 20200624
  36. 0.9% SODIUM CHLORIDE INJECTION [Suspect]
     Active Substance: SODIUM CHLORIDE
     Dosage: DOSE RE?INTRODUCED, VINCRISTINE + 0.9% SODIUM CHLORIDE
     Route: 042
  37. DEXAMETHASONE SODIUM PHOSPHATE. [Suspect]
     Active Substance: DEXAMETHASONE SODIUM PHOSPHATE
     Dosage: FOURTH CYCLE OF CHEMOTHERAPY, 0.9% SODIUM CHLORIDE 3ML + DEXAMETHASONE+ CYTARABINE
     Route: 037
     Dates: start: 20200617, end: 20200617
  38. DEXAMETHASONE SODIUM PHOSPHATE. [Suspect]
     Active Substance: DEXAMETHASONE SODIUM PHOSPHATE
     Dosage: DOSE RE?INTRODUCED, 0.9% SODIUM CHLORIDE+ DEXAMETHASONE+ CYTARABINE
     Route: 037
  39. SAIDESA (CYTARABINE) [Suspect]
     Active Substance: CYTARABINE
     Dosage: FOURTH CYCLES OF CHEMOTHERAPY, 5% GLUCOSE INJECTION 100 ML + CYTARABINE
     Route: 041
     Dates: start: 20200617, end: 20200624

REACTIONS (1)
  - Myelosuppression [Recovering/Resolving]

NARRATIVE: CASE EVENT DATE: 20200627
